FAERS Safety Report 25439794 (Version 1)
Quarter: 2025Q2

REPORT INFORMATION
  Report Type: Spontaneous
  Country: US (occurrence: None)
  Receive Date: 20250615
  Receipt Date: 20250615
  Transmission Date: 20250717
  Serious: Yes (Disabling, Other)
  Sender: FDA-CTU
  Company Number: None

PATIENT
  Age: 38 Year
  Sex: Male
  Weight: 81 kg

DRUGS (1)
  1. FLONASE [Suspect]
     Active Substance: FLUTICASONE PROPIONATE
     Indication: Seasonal allergy
     Dates: start: 20240123, end: 20240323

REACTIONS (5)
  - Asthenia [None]
  - Mental disorder [None]
  - Economic problem [None]
  - Hormone level abnormal [None]
  - Product communication issue [None]

NARRATIVE: CASE EVENT DATE: 20240323
